FAERS Safety Report 20950271 (Version 3)
Quarter: 2022Q4

REPORT INFORMATION
  Report Type: Spontaneous
  Country: US (occurrence: US)
  Receive Date: 20220613
  Receipt Date: 20221216
  Transmission Date: 20230113
  Serious: No
  Sender: FDA-Public Use
  Company Number: US-EXELIXIS-CABO-22051892

PATIENT
  Age: 71 Year
  Sex: Female

DRUGS (5)
  1. OPDIVO [Suspect]
     Active Substance: NIVOLUMAB
     Indication: Renal cell carcinoma stage IV
     Dosage: UNK, Q4WEEKS
     Dates: start: 20220103, end: 20220325
  2. CABOMETYX [Suspect]
     Active Substance: CABOZANTINIB S-MALATE
     Indication: Renal cell carcinoma stage IV
     Dosage: 20 MG, QD
     Route: 048
     Dates: start: 20220215
  3. SYNTHROID [Concomitant]
     Active Substance: LEVOTHYROXINE SODIUM
     Dosage: UNK
  4. SYNTHROID [Concomitant]
     Active Substance: LEVOTHYROXINE SODIUM
     Indication: Product used for unknown indication
  5. OMEPRAZOLE [Concomitant]
     Active Substance: OMEPRAZOLE
     Indication: Ulcer
     Dosage: UNK

REACTIONS (6)
  - Alopecia [Unknown]
  - Oral discomfort [Not Recovered/Not Resolved]
  - Hypertension [Recovered/Resolved]
  - Taste disorder [Not Recovered/Not Resolved]
  - Erythema [Unknown]
  - Dry mouth [Unknown]

NARRATIVE: CASE EVENT DATE: 20220201
